FAERS Safety Report 7865667-4 (Version None)
Quarter: 2011Q4

REPORT INFORMATION
  Report Type: 
  Country: None (occurrence: None)
  Receive Date: 20111028
  Receipt Date: 20110203
  Transmission Date: 20120403
  Serious: No
  Sender: FDA-Public Use
  Company Number: US-GLAXOSMITHKLINE-A0911702A

PATIENT
  Sex: Male

DRUGS (1)
  1. ADVAIR DISKUS 100/50 [Suspect]
     Indication: ASTHMA
     Dosage: 1PUFF TWICE PER DAY
     Route: 055

REACTIONS (7)
  - FEELING ABNORMAL [None]
  - HAEMOPTYSIS [None]
  - MALAISE [None]
  - LUNG INFECTION [None]
  - PRODUCT QUALITY ISSUE [None]
  - DYSPNOEA [None]
  - PYREXIA [None]
